FAERS Safety Report 8066241-X (Version None)
Quarter: 2011Q4

REPORT INFORMATION
  Report Type: 
  Country: None (occurrence: None)
  Receive Date: 20111221
  Receipt Date: 20110928
  Transmission Date: 20120403
  Serious: Yes (Hospitalization)
  Sender: FDA-Public Use
  Company Number: PHEH2011US05132

PATIENT
  Age: 31 Year
  Sex: Female

DRUGS (6)
  1. FOLIC ACID [Concomitant]
  2. EXJADE [Suspect]
     Indication: SICKLE CELL ANAEMIA
     Dosage: 1500 MG, DAILY, ORAL, 1000 MG, DAILY, ORAL
     Route: 048
     Dates: start: 20080930, end: 20090324
  3. EXJADE [Suspect]
     Indication: SICKLE CELL ANAEMIA
     Dosage: 1500 MG, DAILY, ORAL, 1000 MG, DAILY, ORAL
     Route: 048
     Dates: start: 20090325
  4. EXJADE [Suspect]
     Indication: SICKLE CELL ANAEMIA
     Dosage: 1500 MG, DAILY, ORAL, 1000 MG, DAILY, ORAL
     Route: 048
     Dates: start: 20060615, end: 20080929
  5. HYDROXYUREA [Concomitant]
  6. COUMADIN [Concomitant]

REACTIONS (1)
  - SICKLE CELL ANAEMIA WITH CRISIS [None]
